FAERS Safety Report 9854784 (Version 1)
Quarter: 2014Q1

REPORT INFORMATION
  Report Type: Spontaneous
  Country: US (occurrence: US)
  Receive Date: 20140130
  Receipt Date: 20140130
  Transmission Date: 20141002
  Serious: No
  Sender: FDA-Public Use
  Company Number: US-PFIZER INC-2014026881

PATIENT
  Age: 54 Year
  Sex: Female
  Weight: 65.76 kg

DRUGS (2)
  1. ALPRAZOLAM [Suspect]
     Indication: ANXIETY
     Dosage: 1 MG, 2X/DAY
     Route: 048
     Dates: start: 2012
  2. ATORVASTATIN CALCIUM [Suspect]
     Indication: BLOOD CHOLESTEROL ABNORMAL
     Dosage: 20 MG, DAILY
     Route: 048
     Dates: start: 20140113

REACTIONS (3)
  - Drug ineffective [Not Recovered/Not Resolved]
  - Somnolence [Unknown]
  - Feeling of relaxation [Unknown]
